APPROVED DRUG PRODUCT: FOLIC ACID
Active Ingredient: FOLIC ACID
Strength: 1MG
Dosage Form/Route: TABLET;ORAL
Application: A087828 | Product #001
Applicant: USL PHARMA INC
Approved: May 13, 1982 | RLD: No | RS: No | Type: DISCN